FAERS Safety Report 8179294-5 (Version None)
Quarter: 2012Q1

REPORT INFORMATION
  Report Type: 
  Country: None (occurrence: None)
  Receive Date: 20120229
  Receipt Date: 20120229
  Transmission Date: 20120608
  Serious: Yes (Life-Threatening, Hospitalization)
  Sender: FDA-Public Use
  Company Number: None

PATIENT
  Sex: Male
  Weight: 113.3993 kg

DRUGS (1)
  1. PRADAXA [Suspect]
     Indication: CARDIAC DISORDER
     Dosage: TWICE MORNING NITE
     Dates: start: 20110401, end: 20120102

REACTIONS (2)
  - FAECES DISCOLOURED [None]
  - HAEMORRHAGE [None]
